FAERS Safety Report 8622876-4 (Version None)
Quarter: 2012Q3

REPORT INFORMATION
  Report Type: 
  Country: None (occurrence: None)
  Receive Date: 20120827
  Receipt Date: 20120821
  Transmission Date: 20120928
  Serious: Yes (Hospitalization, Other)
  Sender: FDA-Public Use
  Company Number: PHHY2009VE46150

PATIENT
  Sex: Female

DRUGS (9)
  1. EXJADE [Suspect]
     Indication: SICKLE CELL ANAEMIA
     Dosage: 500 MG, QD
     Dates: start: 20090701
  2. EXJADE [Suspect]
     Indication: SERUM FERRITIN INCREASED
     Dosage: 1000 MG, QD
  3. SUCRALFATE [Concomitant]
     Dosage: UNK UKN, UNK
  4. METRONIDAZOLE [Concomitant]
     Dosage: UNK UKN, UNK
     Route: 042
  5. EXJADE [Suspect]
     Dosage: 2000 MG, DAILY
  6. CIPROFLOXACIN HCL [Concomitant]
     Dosage: UNK UKN, UNK
     Route: 042
  7. OMEPRAZOLE [Concomitant]
     Dosage: 40 MG, UNK
     Dates: start: 20090601
  8. HYDREA [Concomitant]
     Indication: SICKLE CELL ANAEMIA
     Dosage: 500 MG, QD
     Dates: start: 20030101, end: 20091014
  9. FOLIC ACID [Concomitant]
     Dosage: 10 MG, UNK

REACTIONS (8)
  - HEPATITIS [None]
  - TACHYCARDIA [None]
  - ARTHRALGIA [None]
  - PAIN IN EXTREMITY [None]
  - PAIN [None]
  - NAUSEA [None]
  - CHROMATURIA [None]
  - SERUM FERRITIN INCREASED [None]
